FAERS Safety Report 9109670 (Version 2)
Quarter: 2013Q2

REPORT INFORMATION
  Report Type: Report from Study
  Country: TH (occurrence: TH)
  Receive Date: 20130222
  Receipt Date: 20130410
  Transmission Date: 20140414
  Serious: Yes (Life-Threatening, Hospitalization, Other)
  Sender: FDA-Public Use
  Company Number: TH-SANOFI-AVENTIS-2013SA016521

PATIENT
  Age: 73 Year
  Sex: Male
  Weight: 60 kg

DRUGS (9)
  1. CABAZITAXEL [Suspect]
     Indication: PROSTATE CANCER METASTATIC
     Route: 042
     Dates: start: 20120808, end: 20120808
  2. CABAZITAXEL [Suspect]
     Indication: PROSTATE CANCER METASTATIC
     Route: 042
     Dates: start: 20130123, end: 20130123
  3. PREDNISOLONE [Suspect]
     Indication: PROSTATE CANCER METASTATIC
     Dates: start: 20120808, end: 20130126
  4. ENALAPRIL [Concomitant]
  5. ATENOLOL [Concomitant]
  6. SIMVASTATIN [Concomitant]
  7. ISOSORBIDE DINITRATE [Concomitant]
  8. ISOSORBIDE [Concomitant]
  9. OMEPRAZOLE [Concomitant]

REACTIONS (1)
  - Acute myocardial infarction [Recovered/Resolved]
